FAERS Safety Report 13932042 (Version 3)
Quarter: 2018Q3

REPORT INFORMATION
  Report Type: Spontaneous
  Country: GB (occurrence: GB)
  Receive Date: 20170904
  Receipt Date: 20180713
  Transmission Date: 20181010
  Serious: Yes (Other)
  Sender: FDA-Public Use
  Company Number: GB-ORION CORPORATION ORION PHARMA-TREX2017-2723

PATIENT
  Age: 11 Year
  Sex: Female

DRUGS (5)
  1. VINCRISTINE [Concomitant]
     Active Substance: VINCRISTINE
     Route: 065
     Dates: start: 20170505
  2. METHOTREXATE (TRADE NAME UNKNOWN) [Suspect]
     Active Substance: METHOTREXATE
     Indication: SOFT TISSUE SARCOMA
     Route: 065
     Dates: start: 20170123
  3. VINBLASTINE [Suspect]
     Active Substance: VINBLASTINE
     Indication: SOFT TISSUE SARCOMA
     Route: 065
     Dates: start: 20170123
  4. ACTINOMYCIN D [Concomitant]
     Active Substance: DACTINOMYCIN
     Route: 065
     Dates: start: 20170505
  5. IFOSFAMIDE. [Concomitant]
     Active Substance: IFOSFAMIDE
     Route: 065
     Dates: start: 20170505

REACTIONS (2)
  - Soft tissue sarcoma [Unknown]
  - Drug ineffective [Unknown]

NARRATIVE: CASE EVENT DATE: 201708
